FAERS Safety Report 10765048 (Version 2)
Quarter: 2016Q1

REPORT INFORMATION
  Report Type: Spontaneous
  Country: US (occurrence: US)
  Receive Date: 20150205
  Receipt Date: 20160314
  Transmission Date: 20160525
  Serious: Yes (Other)
  Sender: FDA-Public Use
  Company Number: US-PFIZER INC-2015044990

PATIENT
  Age: 41 Year
  Sex: Female

DRUGS (1)
  1. MEDROL [Suspect]
     Active Substance: METHYLPREDNISOLONE
     Indication: ASTHMA
     Dosage: UNK
     Dates: start: 2010

REACTIONS (2)
  - Drug hypersensitivity [Recovered/Resolved]
  - Throat tightness [Recovered/Resolved]
